FAERS Safety Report 4618694-4 (Version None)
Quarter: 2005Q2

REPORT INFORMATION
  Report Type: 
  Country: None (occurrence: None)
  Receive Date: 20050311
  Receipt Date: 20041108
  Transmission Date: 20051028
  Serious: No
  Sender: FDA-Public Use
  Company Number: 2004-BP-09740BP

PATIENT
  Age: 62 Year
  Sex: Female

DRUGS (12)
  1. SPIRIVA [Suspect]
     Indication: CHRONIC OBSTRUCTIVE PULMONARY DISEASE
     Dosage: 18 MCG (18 MCG), IH
     Route: 055
     Dates: start: 20040922
  2. SPIRIVA [Suspect]
  3. SPIRIVA [Suspect]
  4. TEQUIN [Suspect]
     Indication: INFECTION
     Dates: start: 20040919, end: 20040925
  5. PENICILLIN [Suspect]
     Dates: start: 20040909
  6. ADVAIR DISKUS 100/50 [Concomitant]
  7. ALBUTEROL [Concomitant]
  8. CLONAZEPAM [Concomitant]
  9. TAMOXIFEN CITRATE [Concomitant]
  10. LEXAPRO [Concomitant]
  11. ACIPHEX [Concomitant]
  12. VALTREX [Concomitant]

REACTIONS (4)
  - CANDIDIASIS [None]
  - COUGH [None]
  - DIARRHOEA [None]
  - DYSPHONIA [None]
